FAERS Safety Report 5312326-8 (Version None)
Quarter: 2007Q2

REPORT INFORMATION
  Report Type: 
  Country: None (occurrence: None)
  Receive Date: 20070430
  Receipt Date: 20061027
  Transmission Date: 20071010
  Serious: Yes (Hospitalization)
  Sender: FDA-Public Use
  Company Number: 2006UW20687

PATIENT
  Age: 60 Year
  Sex: Female

DRUGS (4)
  1. NEXIUM [Suspect]
     Route: 048
  2. ZOLOFT [Concomitant]
  3. ZESTRIL [Concomitant]
  4. XANAX [Concomitant]

REACTIONS (1)
  - SKIN REACTION [None]
